FAERS Safety Report 9757895 (Version 2)
Quarter: 2013Q4

REPORT INFORMATION
  Report Type: Report from Study
  Country: DE (occurrence: DE)
  Receive Date: 20131216
  Receipt Date: 20131219
  Transmission Date: 20140711
  Serious: Yes (Hospitalization)
  Sender: FDA-Public Use
  Company Number: DE-ROCHE-1318104

PATIENT
  Age: 72 Year
  Sex: Male
  Weight: 67 kg

DRUGS (9)
  1. BEVACIZUMAB [Suspect]
     Indication: COLON CANCER
     Dosage: DATE OF LAST DOSE PRIOR TO SAE: 03/DEC/2013
     Route: 042
     Dates: start: 20110505
  2. 5-FU [Suspect]
     Indication: COLON CANCER
     Route: 042
     Dates: start: 20110505
  3. 5-FU [Suspect]
     Dosage: DATE OF LAST DOSE PRIOR TO SAE: 04/DEC/2013
     Route: 042
     Dates: start: 20131203
  4. FOLINIC ACID [Suspect]
     Indication: COLON CANCER
     Dosage: DATE OF LAST DOSE PRIOR TO SAE: 04/DEC/2013
     Route: 042
     Dates: start: 20110505
  5. OXALIPLATIN [Suspect]
     Indication: COLON CANCER
     Dosage: DATE OF LAST DOSE PRIOR TO SAE: 09/JUL/2012
     Route: 042
     Dates: start: 20110505
  6. INNOHEP [Concomitant]
     Route: 058
     Dates: start: 20130521
  7. DELIX (GERMANY) [Concomitant]
     Route: 065
     Dates: start: 1996
  8. PANTOZOL (GERMANY) [Concomitant]
     Route: 065
     Dates: start: 20110513
  9. AMPHO-MORONAL [Concomitant]
     Route: 065
     Dates: start: 20131112

REACTIONS (1)
  - Mucosal inflammation [Recovered/Resolved]
